FAERS Safety Report 12160609 (Version 1)
Quarter: 2016Q1

REPORT INFORMATION
  Report Type: Spontaneous
  Country: FR (occurrence: FR)
  Receive Date: 20160308
  Receipt Date: 20160308
  Transmission Date: 20160526
  Serious: Yes (Other)
  Sender: FDA-Public Use
  Company Number: FR-ELI_LILLY_AND_COMPANY-FR201602009313

PATIENT
  Age: 24 Year
  Sex: Female

DRUGS (2)
  1. CYMBALTA [Suspect]
     Active Substance: DULOXETINE HYDROCHLORIDE
     Indication: DEPRESSION
     Dosage: 30 MG, UNKNOWN
     Dates: start: 20160217, end: 20160223
  2. RISPERDAL [Concomitant]
     Active Substance: RISPERIDONE
     Dosage: 1 MG, UNKNOWN
     Route: 065

REACTIONS (6)
  - Monoplegia [Unknown]
  - Insomnia [Unknown]
  - Dry mouth [Unknown]
  - Nightmare [Unknown]
  - Cyanosis [Unknown]
  - Loss of consciousness [Unknown]
